FAERS Safety Report 15170941 (Version 3)
Quarter: 2018Q4

REPORT INFORMATION
  Report Type: Report from Study
  Country: US (occurrence: US)
  Receive Date: 20180720
  Receipt Date: 20181016
  Transmission Date: 20190204
  Serious: No
  Sender: FDA-Public Use
  Company Number: US-SA-2018SA194781

PATIENT
  Age: 30 Year
  Sex: Male

DRUGS (2)
  1. DUPILUMAB [Suspect]
     Active Substance: DUPILUMAB
     Dosage: 300 MG, QOW
     Route: 058
     Dates: start: 20180619
  2. DUPILUMAB [Suspect]
     Active Substance: DUPILUMAB
     Indication: DERMATITIS ATOPIC
     Dosage: 600 MG, 1X
     Route: 058
     Dates: start: 20180529, end: 20180529

REACTIONS (7)
  - Headache [Unknown]
  - Arthralgia [Unknown]
  - Skin irritation [Unknown]
  - Dry skin [Unknown]
  - Lymphadenopathy [Not Recovered/Not Resolved]
  - Dermatitis atopic [Unknown]
  - Lymph node pain [Unknown]

NARRATIVE: CASE EVENT DATE: 2018
